FAERS Safety Report 19496295 (Version 1)
Quarter: 2021Q3

REPORT INFORMATION
  Report Type: Spontaneous
  Country: US (occurrence: US)
  Receive Date: 20210702
  Receipt Date: 20210702
  Transmission Date: 20211014
  Serious: No
  Sender: FDA-Public Use
  Company Number: None

PATIENT

DRUGS (1)
  1. NEULASTA [Suspect]
     Active Substance: PEGFILGRASTIM
     Indication: CHEMOTHERAPY SIDE EFFECT PROPHYLAXIS
     Dosage: ?          OTHER FREQUENCY:ONCE PER CYCLE;?
     Route: 058

REACTIONS (1)
  - Wrong technique in device usage process [None]

NARRATIVE: CASE EVENT DATE: 20210701
